FAERS Safety Report 5593475-6 (Version None)
Quarter: 2008Q1

REPORT INFORMATION
  Report Type: 
  Country: None (occurrence: None)
  Receive Date: 20080116
  Receipt Date: 20071226
  Transmission Date: 20080703
  Serious: No
  Sender: FDA-Public Use
  Company Number: US-BAYER-200717218NA

PATIENT
  Sex: Female

DRUGS (1)
  1. YAZ [Suspect]
     Route: 048
     Dates: start: 20070701, end: 20071224

REACTIONS (4)
  - ABDOMINAL PAIN [None]
  - DRUG DOSE OMISSION [None]
  - HEADACHE [None]
  - METRORRHAGIA [None]
